FAERS Safety Report 9405300 (Version 1)
Quarter: 2013Q3

REPORT INFORMATION
  Report Type: Spontaneous
  Country: NL (occurrence: NL)
  Receive Date: 20130717
  Receipt Date: 20130717
  Transmission Date: 20140515
  Serious: Yes (Other)
  Sender: FDA-Public Use
  Company Number: NL-TEVA-417799ISR

PATIENT
  Age: 57 Year
  Sex: Female
  Weight: 60 kg

DRUGS (2)
  1. CLARITHROMYCINE [Suspect]
     Indication: EAR INFECTION
     Dosage: 1000 MILLIGRAM DAILY; TWICE DAILY ONE PIECE
     Route: 048
     Dates: start: 20130610
  2. IBUPROFEN DRAGEE [Interacting]
     Indication: EAR PAIN
     Dosage: 400 MILLIGRAM DAILY; ONCE DAILY ONE PIECE
     Route: 048
     Dates: start: 20130614, end: 20130614

REACTIONS (2)
  - Convulsion [Recovered/Resolved]
  - Drug interaction [Recovered/Resolved]
